FAERS Safety Report 5488402-6 (Version None)
Quarter: 2007Q3

REPORT INFORMATION
  Report Type: 
  Country: None (occurrence: None)
  Receive Date: 20070927
  Receipt Date: 20070605
  Transmission Date: 20080115
  Serious: No
  Sender: FDA-Public Use
  Company Number: US-CVT-070118

PATIENT
  Sex: Female
  Weight: 95.2 kg

DRUGS (18)
  1. RANEXA [Suspect]
     Indication: ANGINA PECTORIS
     Dosage: 500 MG, BID, ORAL
     Route: 048
     Dates: start: 20061101, end: 20070101
  2. RANEXA [Suspect]
     Indication: ANGINA PECTORIS
     Dosage: 500 MG, BID, ORAL
     Route: 048
     Dates: start: 20070201, end: 20070201
  3. TOPROL-XL [Concomitant]
  4. POTASSIUM CHLORIDE [Concomitant]
  5. FUROSEMIDE [Concomitant]
  6. ISOSORBIDE (ISOSORBIDE) [Concomitant]
  7. LIPITOR [Concomitant]
  8. LANTUS [Concomitant]
  9. METFORMIN HCL [Concomitant]
  10. NEXIUM [Concomitant]
  11. EFFEXOR [Concomitant]
  12. CLONAZEPAM [Concomitant]
  13. NAPROSYN [Concomitant]
  14. RESTASIS (CICLOSPORIN) [Concomitant]
  15. NORVASC [Concomitant]
  16. NITROGLYCERIN [Concomitant]
  17. DOCUSATE (DOCUSATE) [Concomitant]
  18. PRIMIDONE [Concomitant]

REACTIONS (1)
  - RASH PRURITIC [None]
